FAERS Safety Report 18070387 (Version 1)
Quarter: 2020Q3

REPORT INFORMATION
  Report Type: Spontaneous
  Country: NL (occurrence: NL)
  Receive Date: 20200727
  Receipt Date: 20200727
  Transmission Date: 20201103
  Serious: Yes (Life-Threatening, Hospitalization, Other)
  Sender: FDA-Public Use
  Company Number: NL-LUPIN PHARMACEUTICALS INC.-2020-03707

PATIENT
  Age: 35 Year
  Sex: Male

DRUGS (11)
  1. PREDNISOLONE. [Concomitant]
     Active Substance: PREDNISOLONE
     Indication: IMMUNOSUPPRESSANT DRUG THERAPY
     Dosage: 7.5 MILLIGRAM, QD
     Route: 065
  2. TRAMADOL. [Concomitant]
     Active Substance: TRAMADOL
     Indication: MYALGIA
     Dosage: UNK
     Route: 065
     Dates: start: 202002
  3. CEFTRIAXONE. [Suspect]
     Active Substance: CEFTRIAXONE
     Indication: COVID-19
     Dosage: UNK
     Route: 065
     Dates: start: 202003
  4. LOPINAVIR/RITONAVIR [Interacting]
     Active Substance: LOPINAVIR\RITONAVIR
     Indication: COVID-19
  5. EVEROLIMUS. [Interacting]
     Active Substance: EVEROLIMUS
     Dosage: 2 MILLIGRAM (DOSE REDUCED DUE TO EXPECTED INTERACTION WITH LOPINAVIR/RITONAVIR)
     Route: 065
     Dates: start: 202003, end: 202003
  6. CHLOROQUINE. [Suspect]
     Active Substance: CHLOROQUINE
     Dosage: 300 MILLIGRAM
     Route: 048
     Dates: start: 202003, end: 202003
  7. ACETAMINOPHEN. [Concomitant]
     Active Substance: ACETAMINOPHEN
     Indication: PYREXIA
     Dosage: UNK
     Route: 065
     Dates: start: 202002
  8. CHLOROQUINE. [Suspect]
     Active Substance: CHLOROQUINE
     Indication: COVID-19
     Dosage: 600 MILLIGRAM (LOADING DOSE)
     Route: 048
     Dates: start: 202003, end: 202003
  9. LOPINAVIR/RITONAVIR [Interacting]
     Active Substance: LOPINAVIR\RITONAVIR
     Indication: ANTIVIRAL TREATMENT
     Dosage: 1 DOSAGE FORM, BID (400/100 MG)
     Route: 065
     Dates: start: 202003, end: 202003
  10. EVEROLIMUS. [Interacting]
     Active Substance: EVEROLIMUS
     Indication: IMMUNOSUPPRESSANT DRUG THERAPY
     Dosage: 3 MILLIGRAM (TARGETED TROUGH CONCENTRATIONS BETWEEN 3?8 MICROG/L)
     Route: 065
     Dates: end: 202003
  11. CEFUROXIME. [Suspect]
     Active Substance: CEFUROXIME
     Indication: COVID-19
     Dosage: UNK
     Route: 065
     Dates: start: 202003, end: 202003

REACTIONS (5)
  - Respiratory failure [Recovered/Resolved]
  - Off label use [Unknown]
  - Condition aggravated [Recovered/Resolved]
  - Renal impairment [Recovering/Resolving]
  - Interstitial lung disease [Recovered/Resolved]

NARRATIVE: CASE EVENT DATE: 202003
